FAERS Safety Report 7078711-1 (Version None)
Quarter: 2010Q4

REPORT INFORMATION
  Report Type: 
  Country: None (occurrence: None)
  Receive Date: 20101102
  Receipt Date: 20101018
  Transmission Date: 20110411
  Serious: Yes (Other)
  Sender: FDA-Public Use
  Company Number: US-AMGEN-QUU432649

PATIENT

DRUGS (5)
  1. NPLATE [Suspect]
     Indication: IDIOPATHIC THROMBOCYTOPENIC PURPURA
     Dosage: 10 A?G/KG, UNK
     Dates: start: 20100204, end: 20100802
  2. NPLATE [Suspect]
     Dates: start: 20100201, end: 20100802
  3. CORTICOSTEROID NOS [Concomitant]
     Dosage: UNK UNK, UNK
     Dates: start: 20080401
  4. IMMU-G [Concomitant]
     Dosage: UNK UNK, UNK
     Route: 042
     Dates: start: 20090201
  5. PREDNISONE [Concomitant]
     Dosage: 7.5 MG, QD

REACTIONS (9)
  - ADRENAL INSUFFICIENCY [None]
  - CHRONIC LEUKAEMIA [None]
  - DRUG INEFFECTIVE [None]
  - LYMPHOMA [None]
  - MENISCUS LESION [None]
  - PITUITARY TUMOUR [None]
  - RENAL FAILURE CHRONIC [None]
  - SPLENOMEGALY [None]
  - THERAPEUTIC RESPONSE DECREASED [None]
